FAERS Safety Report 13238825 (Version 1)
Quarter: 2017Q1

REPORT INFORMATION
  Report Type: Spontaneous
  Country: US (occurrence: US)
  Receive Date: 20170215
  Receipt Date: 20170215
  Transmission Date: 20170428
  Serious: No
  Sender: FDA-Public Use
  Company Number: None

PATIENT
  Age: 46 Year
  Sex: Female

DRUGS (2)
  1. NORDITROPIN [Suspect]
     Active Substance: SOMATROPIN
     Indication: HYPOPITUITARISM
  2. NORDITROPIN [Suspect]
     Active Substance: SOMATROPIN
     Indication: ASTHMA

REACTIONS (3)
  - Oedema [None]
  - Musculoskeletal stiffness [None]
  - Breast pain [None]

NARRATIVE: CASE EVENT DATE: 20170101
